FAERS Safety Report 8998718 (Version 1)
Quarter: 2013Q1

REPORT INFORMATION
  Report Type: Spontaneous
  Country: GB (occurrence: GB)
  Receive Date: 20130103
  Receipt Date: 20130103
  Transmission Date: 20140127
  Serious: Yes (Life-Threatening, Hospitalization, Disabling)
  Sender: FDA-Public Use
  Company Number: GB-009507513-1301GBR000156

PATIENT
  Age: 84 Year
  Sex: Female
  Weight: 70 kg

DRUGS (11)
  1. ALENDRONATE SODIUM [Suspect]
     Indication: OSTEOPOROSIS
     Dosage: 70 MG, QW
     Route: 048
     Dates: start: 2008, end: 201212
  2. ASPIRIN [Concomitant]
     Dosage: 75 MG, QD
     Route: 048
  3. ATENOLOL [Concomitant]
     Dosage: 25 MG, QD
     Route: 048
  4. FERROUS FUMARATE [Concomitant]
     Dosage: 210 MG, QD
  5. FUROSEMIDE [Concomitant]
     Dosage: 40 MG, QD
     Route: 048
  6. GLICLAZIDE [Concomitant]
     Dosage: 40 MG, QD
  7. LOSARTAN POTASSIUM 100MG [Concomitant]
     Dosage: 100 MG, QD
  8. METFORMIN [Concomitant]
     Dosage: 500 MG, TID
     Route: 048
  9. OMEPRAZOLE [Concomitant]
     Dosage: 20 MG, QD
  10. PREDNISOLONE [Concomitant]
     Dosage: 5 MG, QD
  11. SIMVASTATIN [Concomitant]
     Dosage: 20 MG, QD
     Route: 048

REACTIONS (1)
  - Femur fracture [Recovering/Resolving]
